FAERS Safety Report 8075638-3 (Version None)
Quarter: 2012Q1

REPORT INFORMATION
  Report Type: 
  Country: None (occurrence: None)
  Receive Date: 20120117
  Receipt Date: 20120109
  Transmission Date: 20120608
  Serious: Yes (Hospitalization, Other)
  Sender: FDA-Public Use
  Company Number: 2012P1002471

PATIENT
  Age: 46 Year
  Sex: Female

DRUGS (3)
  1. VALPROATE SODIUM [Suspect]
     Indication: CONVULSION
     Dosage: 1500 MG;QD
  2. PHENOBARBITAL (NO PREF. NAME) [Suspect]
     Indication: CONVULSION
     Dosage: 100 MG;QD
  3. TOPIRAMATE [Suspect]
     Indication: CONVULSION
     Dosage: 200 MG;QD ; 300 MG;QD

REACTIONS (11)
  - APHASIA [None]
  - GAIT DISTURBANCE [None]
  - NUCLEAR MAGNETIC RESONANCE IMAGING BRAIN ABNORMAL [None]
  - MEMORY IMPAIRMENT [None]
  - DYSKINESIA [None]
  - POTENTIATING DRUG INTERACTION [None]
  - MYOCLONUS [None]
  - DISORIENTATION [None]
  - ABNORMAL BEHAVIOUR [None]
  - ANTICONVULSANT DRUG LEVEL BELOW THERAPEUTIC [None]
  - HYPERAMMONAEMIC ENCEPHALOPATHY [None]
